FAERS Safety Report 10235946 (Version 1)
Quarter: 2014Q2

REPORT INFORMATION
  Report Type: Spontaneous
  Country: GB (occurrence: GB)
  Receive Date: 20140613
  Receipt Date: 20140613
  Transmission Date: 20141212
  Serious: Yes (Life-Threatening)
  Sender: FDA-Public Use
  Company Number: GB-TEVA-486889ISR

PATIENT
  Sex: Male

DRUGS (5)
  1. MORPHINE [Suspect]
     Indication: GENERAL ANAESTHESIA
     Dates: start: 20131022, end: 20131022
  2. FENTANYL [Suspect]
     Indication: GENERAL ANAESTHESIA
     Dates: start: 20131022, end: 20131022
  3. ATRACURIUM [Suspect]
     Indication: GENERAL ANAESTHESIA
     Dates: start: 20131022, end: 20131022
  4. PROPOFOL [Suspect]
     Indication: GENERAL ANAESTHESIA
     Dates: start: 20131022, end: 20131022
  5. SUXAMETHONIUM [Suspect]
     Indication: GENERAL ANAESTHESIA
     Dates: start: 20131022, end: 20131022

REACTIONS (2)
  - Circulatory collapse [Recovered/Resolved]
  - Bronchospasm [Recovered/Resolved]
